FAERS Safety Report 12525936 (Version 3)
Quarter: 2016Q3

REPORT INFORMATION
  Report Type: Spontaneous
  Country: FR (occurrence: FR)
  Receive Date: 20160705
  Receipt Date: 20160804
  Transmission Date: 20161109
  Serious: Yes (Hospitalization)
  Sender: FDA-Public Use
  Company Number: FR-PFIZER INC-2016304710

PATIENT
  Age: 4 Year
  Sex: Male
  Weight: 19 kg

DRUGS (11)
  1. XALUPRINE [Suspect]
     Active Substance: MERCAPTOPURINE
     Indication: ACUTE LYMPHOCYTIC LEUKAEMIA
     Dosage: 56 MG, 1X/DAY
     Route: 048
     Dates: start: 20160319, end: 20160524
  2. IMETH [Suspect]
     Active Substance: METHOTREXATE SODIUM
     Indication: ACUTE LYMPHOCYTIC LEUKAEMIA
     Dosage: 20 MG, WEEKLY
     Route: 048
     Dates: start: 20160319, end: 20160524
  3. IMETH [Suspect]
     Active Substance: METHOTREXATE SODIUM
     Dosage: 25 MG, WEEKLY (1 IN 1 W)
     Route: 048
     Dates: start: 20160525, end: 20160526
  4. CIFLOX /00697201/ [Suspect]
     Active Substance: CIPROFLOXACIN
     Indication: ANTIBIOTIC THERAPY
  5. CIFLOX /00697201/ [Suspect]
     Active Substance: CIPROFLOXACIN
     Indication: FEBRILE BONE MARROW APLASIA
     Dosage: 200 MG, 2X/DAY
     Route: 048
     Dates: start: 20160531, end: 20160603
  6. FLIXOTIDE [Concomitant]
     Active Substance: FLUTICASONE PROPIONATE
     Dosage: 50 UG, 2X/DAY
  7. TAZOCILLINE [Suspect]
     Active Substance: PIPERACILLIN SODIUM\TAZOBACTAM SODIUM
     Indication: ANTIBIOTIC THERAPY
  8. VENTOLINE /00139501/ [Concomitant]
     Active Substance: ALBUTEROL
     Dosage: UNK, AS NEEDED
     Route: 055
  9. TAZOCILLINE [Suspect]
     Active Substance: PIPERACILLIN SODIUM\TAZOBACTAM SODIUM
     Indication: FEBRILE BONE MARROW APLASIA
     Dosage: 2.8 (NO UNIT PROVIDED) DAILY
     Route: 042
     Dates: start: 20160531, end: 20160602
  10. XALUPRINE [Suspect]
     Active Substance: MERCAPTOPURINE
     Dosage: 66 MG, 1X/DAY
     Route: 048
     Dates: start: 20160525, end: 20160531
  11. BACTRIM [Concomitant]
     Active Substance: SULFAMETHOXAZOLE\TRIMETHOPRIM
     Dosage: 400 MG, 3X/WEEK

REACTIONS (8)
  - Febrile bone marrow aplasia [Recovered/Resolved]
  - Drug administered to patient of inappropriate age [Unknown]
  - Hepatocellular injury [Recovered/Resolved]
  - Product use issue [Unknown]
  - Toxicity to various agents [Unknown]
  - Lung disorder [Unknown]
  - Productive cough [Unknown]
  - Rales [Unknown]

NARRATIVE: CASE EVENT DATE: 20160319
